FAERS Safety Report 15133407 (Version 6)
Quarter: 2019Q3

REPORT INFORMATION
  Report Type: Spontaneous
  Country: US (occurrence: US)
  Receive Date: 20180712
  Receipt Date: 20190722
  Transmission Date: 20191004
  Serious: Yes (Hospitalization, Other)
  Sender: FDA-Public Use
  Company Number: US-PFIZER INC-2018279864

PATIENT
  Age: 59 Year
  Sex: Female
  Weight: 80 kg

DRUGS (4)
  1. LYRICA [Suspect]
     Active Substance: PREGABALIN
     Indication: MULTIPLE SCLEROSIS
     Dosage: 75 MG, UNK
  2. LYRICA [Suspect]
     Active Substance: PREGABALIN
     Dosage: 75 MG, UNK
     Dates: start: 20180708
  3. LYRICA [Suspect]
     Active Substance: PREGABALIN
     Dosage: 200 MG, 3X/DAY
     Route: 048
  4. LYRICA [Suspect]
     Active Substance: PREGABALIN
     Indication: NEURALGIA
     Dosage: 150 MG, 3X/DAY
     Route: 048
     Dates: start: 2017, end: 20180708

REACTIONS (5)
  - Multiple sclerosis relapse [Unknown]
  - Malaise [Unknown]
  - Asthenia [Unknown]
  - Intentional product misuse [Unknown]
  - Confusional state [Unknown]

NARRATIVE: CASE EVENT DATE: 20180708
